FAERS Safety Report 16736619 (Version 1)
Quarter: 2019Q3

REPORT INFORMATION
  Report Type: Spontaneous
  Country: US (occurrence: US)
  Receive Date: 20190709
  Receipt Date: 20190709
  Transmission Date: 20191005
  Serious: No
  Sender: FDA-Public Use
  Company Number: None

PATIENT
  Age: 48 Year
  Sex: Female
  Weight: 126.1 kg

DRUGS (1)
  1. COSENTYX [Suspect]
     Active Substance: SECUKINUMAB
     Indication: PSORIASIS
     Dosage: INJECT 300MG  (2 SYRINGES) SUBCUTANEOUSLY  EVERY 4  WEEKS AS DIRECTED
     Route: 058
     Dates: start: 201907

REACTIONS (1)
  - Nephrolithiasis [None]
